FAERS Safety Report 20463198 (Version 1)
Quarter: 2022Q1

REPORT INFORMATION
  Report Type: Spontaneous
  Country: US (occurrence: US)
  Receive Date: 20220211
  Receipt Date: 20220211
  Transmission Date: 20220423
  Serious: No
  Sender: FDA-Public Use
  Company Number: US-TEVA-2022-US-1999869

PATIENT
  Sex: Female

DRUGS (1)
  1. DEUTETRABENAZINE [Suspect]
     Active Substance: DEUTETRABENAZINE
     Indication: Huntington^s disease
     Route: 065

REACTIONS (2)
  - Akathisia [Unknown]
  - Anxiety [Unknown]
